FAERS Safety Report 9613273 (Version 1)
Quarter: 2013Q4

REPORT INFORMATION
  Report Type: Spontaneous
  Country: RU (occurrence: RU)
  Receive Date: 20131010
  Receipt Date: 20131010
  Transmission Date: 20140711
  Serious: Yes (Hospitalization)
  Sender: FDA-Public Use
  Company Number: RU-BAYER-2013-120729

PATIENT
  Age: 37 Year
  Sex: Female

DRUGS (1)
  1. YARINA [Suspect]
     Indication: CONTRACEPTION

REACTIONS (2)
  - Ovarian cyst [None]
  - Ovarian cancer [None]
